FAERS Safety Report 15753558 (Version 1)
Quarter: 2018Q4

REPORT INFORMATION
  Report Type: Spontaneous
  Country: US (occurrence: US)
  Receive Date: 20181222
  Receipt Date: 20181222
  Transmission Date: 20190205
  Serious: No
  Sender: FDA-Public Use
  Company Number: US-009507513-1811USA012246

PATIENT
  Sex: Female

DRUGS (1)
  1. NUVARING [Suspect]
     Active Substance: ETHINYL ESTRADIOL\ETONOGESTREL
     Dosage: NUVARING TO REMAIN IN THE VAGINA FOR 4 WEEKS WITHOUT A ONE WEEK RING FREE INTERVAL
     Route: 067

REACTIONS (2)
  - Product prescribing error [Unknown]
  - Inappropriate schedule of product administration [Unknown]
